FAERS Safety Report 12882827 (Version 1)
Quarter: 2016Q4

REPORT INFORMATION
  Report Type: Spontaneous
  Country: CH (occurrence: CH)
  Receive Date: 20161025
  Receipt Date: 20161025
  Transmission Date: 20170207
  Serious: Yes (Other)
  Sender: FDA-Public Use
  Company Number: CH-TEVA-702841ISR

PATIENT
  Age: 50 Year
  Sex: Male
  Weight: 84 kg

DRUGS (18)
  1. TARGIN [Concomitant]
     Active Substance: NALOXONE HYDROCHLORIDE\OXYCODONE HYDROCHLORIDE
     Route: 065
  2. VANCOCIN [Concomitant]
     Active Substance: VANCOMYCIN HYDROCHLORIDE
     Route: 065
  3. PERFALGAN [Concomitant]
     Active Substance: ACETAMINOPHEN
     Route: 065
  4. MEROPENEM LABATEC [Concomitant]
     Active Substance: MEROPENEM
     Dosage: DRY VIALS
     Route: 065
  5. CALCIPARINE [Concomitant]
     Active Substance: HEPARIN CALCIUM
     Dosage: VIALS
     Route: 058
  6. PROGRAF [Concomitant]
     Active Substance: TACROLIMUS\TACROLIMUS ANHYDROUS
     Route: 065
  7. DUPHALAC [Concomitant]
     Active Substance: LACTULOSE
     Dosage: STRENGTH: 1.65G/10.05G/900MG, LIQUIDS
     Route: 065
  8. RESONIUM A [Concomitant]
     Active Substance: SODIUM POLYSTYRENE SULFONATE
     Dosage: SOLUBLE POWDER
     Route: 065
  9. NOVORAPID [Concomitant]
     Active Substance: INSULIN ASPART
     Route: 065
  10. CELLCEPT [Interacting]
     Active Substance: MYCOPHENOLATE MOFETIL\MYCOPHENOLATE MOFETIL HYDROCHLORIDE
     Indication: LIVER TRANSPLANT
     Dosage: 2000 MILLIGRAM DAILY; STRENGTH: 500MG
     Route: 048
     Dates: start: 201609
  11. BACTRIM [Concomitant]
     Active Substance: SULFAMETHOXAZOLE\TRIMETHOPRIM
     Dosage: STRENGTH: 800MG/160MG
     Route: 065
  12. OXYNORM [Concomitant]
     Active Substance: OXYCODONE HYDROCHLORIDE
     Route: 065
  13. ZENTEL [Concomitant]
     Active Substance: ALBENDAZOLE
     Route: 065
  14. VI-DE 3 [Concomitant]
     Active Substance: CHOLECALCIFEROL
     Dosage: STRENGTH: 4500 IU
     Route: 065
  15. FOLSAURE INJECTOPAS [Concomitant]
     Route: 065
  16. ACYCLOVIR-MEPHA I.V. 250 [Suspect]
     Active Substance: ACYCLOVIR
     Indication: HERPES SIMPLEX
     Dosage: 1200 MILLIGRAM DAILY;
     Route: 042
     Dates: start: 20160920, end: 20160926
  17. ZEFFIX [Concomitant]
     Active Substance: LAMIVUDINE
     Route: 065
  18. PANTOPRAZOL SANDOZ [Concomitant]
     Dosage: ENTERIC
     Route: 065

REACTIONS (6)
  - Somnolence [Recovered/Resolved]
  - Accidental overdose [Recovered/Resolved]
  - Abnormal dreams [Recovered/Resolved]
  - Headache [Recovered/Resolved]
  - Confusional state [Recovered/Resolved]
  - Drug interaction [Recovered/Resolved]

NARRATIVE: CASE EVENT DATE: 20160920
